FAERS Safety Report 8846836 (Version 2)
Quarter: 2012Q4

REPORT INFORMATION
  Report Type: 
  Country: DE (occurrence: FR)
  Receive Date: 20121018
  Receipt Date: 20121127
  Transmission Date: 20130627
  Serious: Yes (Hospitalization, Other)
  Sender: FDA-Public Use
  Company Number: FR-BRISTOL-MYERS SQUIBB COMPANY-17028671

PATIENT
  Age: 65 Year
  Sex: Female
  Weight: 69 kg

DRUGS (10)
  1. ABILIFY TABS [Suspect]
     Indication: HYPOMANIA
     Dosage: since several months,Incrd 30mg
     Route: 048
  2. ABILIFY TABS [Suspect]
     Indication: BIPOLAR DISORDER
     Dosage: since several months,Incrd 30mg
     Route: 048
  3. DEPAKOTE [Concomitant]
     Indication: BIPOLAR DISORDER
     Dates: start: 20121004
  4. JANUVIA [Concomitant]
     Indication: DIABETES MELLITUS
  5. METFORMIN [Concomitant]
     Indication: DIABETES MELLITUS
  6. RENITEC [Concomitant]
     Indication: HYPERTENSION
  7. TENORDATE [Concomitant]
     Indication: HYPERTENSION
  8. INSULIN [Concomitant]
     Indication: TYPE 1 DIABETES MELLITUS
  9. LAMISIL [Concomitant]
     Indication: FUNGAL INFECTION
  10. LEVOTHYROX [Concomitant]

REACTIONS (2)
  - Mania [Not Recovered/Not Resolved]
  - Dyskinesia [Not Recovered/Not Resolved]
